FAERS Safety Report 4984443-3 (Version None)
Quarter: 2006Q2

REPORT INFORMATION
  Report Type: 
  Country: None (occurrence: None)
  Receive Date: 20060427
  Receipt Date: 20060426
  Transmission Date: 20061013
  Serious: Yes (Other)
  Sender: FDA-Public Use
  Company Number: US-GLAXOSMITHKLINE-A0603380A

PATIENT
  Age: 37 Year
  Sex: Female

DRUGS (4)
  1. ADVAIR DISKUS 100/50 [Suspect]
     Indication: ASTHMA
     Dosage: 1PUFF TWICE PER DAY
     Route: 055
     Dates: start: 20050101
  2. IBUPROFEN [Concomitant]
  3. ALBUTEROL SULFATE AUTOHALER [Concomitant]
  4. ALLEGRA [Concomitant]

REACTIONS (6)
  - CHOKING [None]
  - DEPRESSED LEVEL OF CONSCIOUSNESS [None]
  - DEVICE MALFUNCTION [None]
  - FEELING JITTERY [None]
  - INCORRECT DOSE ADMINISTERED [None]
  - PHARMACEUTICAL PRODUCT COMPLAINT [None]
